FAERS Safety Report 6049450-0 (Version None)
Quarter: 2009Q1

REPORT INFORMATION
  Report Type: 
  Country: None (occurrence: None)
  Receive Date: 20090121
  Receipt Date: 20090112
  Transmission Date: 20090719
  Serious: Yes (Other)
  Sender: FDA-Public Use
  Company Number: 100#08#2008-06301

PATIENT
  Age: 25 Year
  Sex: Male

DRUGS (2)
  1. VENLAFAXINE HCL [Suspect]
     Indication: DRUG USE FOR UNKNOWN INDICATION
     Dosage: 90 X 150 MG (13.5 MG)
  2. DOTHIEPIN HYDROCHLORIDE [Suspect]
     Indication: DRUG USE FOR UNKNOWN INDICATION
     Dosage: 30 X 25 MG (750 MG)

REACTIONS (9)
  - ACIDOSIS [None]
  - CLONUS [None]
  - ELECTROCARDIOGRAM QRS COMPLEX PROLONGED [None]
  - GRAND MAL CONVULSION [None]
  - HEART RATE INCREASED [None]
  - HYPERREFLEXIA [None]
  - ILEUS [None]
  - MYDRIASIS [None]
  - OVERDOSE [None]
